FAERS Safety Report 14894663 (Version 5)
Quarter: 2019Q2

REPORT INFORMATION
  Report Type: Spontaneous
  Country: US (occurrence: US)
  Receive Date: 20180515
  Receipt Date: 20190423
  Transmission Date: 20190711
  Serious: Yes (Other)
  Sender: FDA-Public Use
  Company Number: PHEH2018US018570

PATIENT
  Sex: Female

DRUGS (3)
  1. TASIGNA [Suspect]
     Active Substance: NILOTINIB
     Dosage: 150 MG, QD
     Route: 048
     Dates: start: 201406
  2. TASIGNA [Suspect]
     Active Substance: NILOTINIB
     Indication: CHRONIC MYELOID LEUKAEMIA
     Dosage: 150 MG, QD
     Route: 048
     Dates: start: 20140603
  3. TASIGNA [Suspect]
     Active Substance: NILOTINIB
     Dosage: 200 MG, QD
     Route: 048
     Dates: start: 201406

REACTIONS (11)
  - Sneezing [Unknown]
  - Nerve compression [Unknown]
  - Head discomfort [Unknown]
  - Rhinorrhoea [Unknown]
  - Constipation [Unknown]
  - Bursitis [Unknown]
  - Pulmonary congestion [Unknown]
  - Limb discomfort [Unknown]
  - Gait disturbance [Unknown]
  - Pain in extremity [Unknown]
  - Muscle spasms [Unknown]
